FAERS Safety Report 6126492-8 (Version None)
Quarter: 2009Q1

REPORT INFORMATION
  Report Type: 
  Country: None (occurrence: None)
  Receive Date: 20090320
  Receipt Date: 20090309
  Transmission Date: 20090719
  Serious: Yes (Hospitalization)
  Sender: FDA-Public Use
  Company Number: IN-PFIZER INC-2009180939

PATIENT

DRUGS (4)
  1. BLINDED *PLACEBO [Suspect]
     Indication: ISCHAEMIC CARDIOMYOPATHY
     Dosage: UNK
     Route: 048
     Dates: start: 20081105, end: 20090309
  2. EPLERENONE [Suspect]
     Indication: ISCHAEMIC CARDIOMYOPATHY
     Dosage: UNK
     Route: 048
     Dates: start: 20081105, end: 20090309
  3. BLINDED *PLACEBO [Suspect]
     Indication: LEFT VENTRICULAR DYSFUNCTION
  4. EPLERENONE [Suspect]
     Indication: LEFT VENTRICULAR DYSFUNCTION

REACTIONS (3)
  - ACUTE PULMONARY OEDEMA [None]
  - ATRIOVENTRICULAR BLOCK COMPLETE [None]
  - HYPERKALAEMIA [None]
